FAERS Safety Report 7326151-X (Version None)
Quarter: 2011Q1

REPORT INFORMATION
  Report Type: 
  Country: None (occurrence: None)
  Receive Date: 20110302
  Receipt Date: 20110113
  Transmission Date: 20110831
  Serious: Yes (Other)
  Sender: FDA-Public Use
  Company Number: US-ROCHE-762503

PATIENT
  Sex: Male
  Weight: 90 kg

DRUGS (18)
  1. ZEMPLAR [Concomitant]
  2. PRILOSEC [Concomitant]
  3. AMLODIPINE [Concomitant]
     Dates: start: 20100113
  4. SENSIPAR [Concomitant]
  5. DIOVAN [Concomitant]
  6. EPOGEN [Suspect]
     Indication: RENAL FAILURE CHRONIC
     Dosage: 20,000 UNITS
     Route: 042
     Dates: start: 20070101
  7. RENVELA [Concomitant]
  8. CODEINE [Concomitant]
  9. ATARAX [Concomitant]
  10. CIALIS [Concomitant]
  11. ACETAMINOPHEN [Concomitant]
  12. NEURONTIN [Concomitant]
     Dates: start: 20100113
  13. LABETALOL HCL [Concomitant]
  14. AMBIEN [Concomitant]
  15. RIBAVIRIN [Suspect]
     Indication: HEPATITIS C
     Route: 048
     Dates: start: 20100301
  16. EPOGEN [Suspect]
     Dosage: DOSE: 28000 UNITS, DOSE INCREASED
     Route: 042
     Dates: end: 20100928
  17. BENTYL [Concomitant]
  18. MIRAPEX [Concomitant]

REACTIONS (13)
  - WHITE BLOOD CELL COUNT DECREASED [None]
  - CARDIAC MURMUR [None]
  - INGUINAL HERNIA REPAIR [None]
  - HYPERPARATHYROIDISM SECONDARY [None]
  - STAPHYLOCOCCAL INFECTION [None]
  - WEIGHT DECREASED [None]
  - ANAEMIA [None]
  - PNEUMONIA [None]
  - FOLLICULITIS [None]
  - RETROPERITONEAL HAEMORRHAGE [None]
  - MENISCUS LESION [None]
  - DERMAL CYST [None]
  - HYPERLIPIDAEMIA [None]
